FAERS Safety Report 22630900 (Version 7)
Quarter: 2024Q3

REPORT INFORMATION
  Report Type: Spontaneous
  Country: PL (occurrence: PL)
  Receive Date: 20230622
  Receipt Date: 20240828
  Transmission Date: 20241017
  Serious: Yes (Other)
  Sender: MERCK
  Company Number: PL-009507513-2306POL010093

PATIENT
  Sex: Male

DRUGS (87)
  1. PEMBROLIZUMAB [Suspect]
     Active Substance: PEMBROLIZUMAB
     Dosage: 200 MILLIGRAM, 1SR DOSE
     Route: 042
     Dates: start: 20221122, end: 20221122
  2. PEMBROLIZUMAB [Suspect]
     Active Substance: PEMBROLIZUMAB
     Dosage: 200 MG, 2ND DOSE
     Route: 042
     Dates: start: 20221208, end: 20221208
  3. PEMBROLIZUMAB [Suspect]
     Active Substance: PEMBROLIZUMAB
     Dosage: 200 MG, 3RD DOSE
     Route: 042
     Dates: start: 20230103, end: 20230103
  4. PEMBROLIZUMAB [Suspect]
     Active Substance: PEMBROLIZUMAB
     Dosage: 200 MG IV, 4TH DOSE
     Route: 042
     Dates: start: 20230210, end: 20230210
  5. PEMBROLIZUMAB [Suspect]
     Active Substance: PEMBROLIZUMAB
     Dosage: 200 MG IV, 5TH DOSE
     Route: 042
     Dates: start: 20230307, end: 20230307
  6. PEMBROLIZUMAB [Suspect]
     Active Substance: PEMBROLIZUMAB
     Dosage: 200 MG IV DOSE 6
     Route: 042
     Dates: start: 20230403, end: 20230403
  7. PEMBROLIZUMAB [Suspect]
     Active Substance: PEMBROLIZUMAB
     Dosage: 200 MG IV, 7TH DOSE
     Route: 042
     Dates: start: 20230429, end: 20230429
  8. PEMBROLIZUMAB [Suspect]
     Active Substance: PEMBROLIZUMAB
     Dosage: 200 MG IV,8TH CYCLE
     Route: 042
     Dates: start: 20230523, end: 20230523
  9. PEMBROLIZUMAB [Suspect]
     Active Substance: PEMBROLIZUMAB
     Dosage: 200 MG IV, 9 DOSE
     Route: 042
     Dates: start: 20230613, end: 20230613
  10. EMEND [Suspect]
     Active Substance: APREPITANT
     Dosage: UNK
     Route: 048
     Dates: start: 20221122, end: 20221122
  11. EMEND [Suspect]
     Active Substance: APREPITANT
     Dosage: UNK
     Route: 048
     Dates: start: 20230103, end: 20230103
  12. EMEND [Suspect]
     Active Substance: APREPITANT
     Dosage: UNK
     Route: 048
     Dates: start: 20230210, end: 20230210
  13. EMEND [Suspect]
     Active Substance: APREPITANT
     Dosage: UNK
     Route: 048
     Dates: start: 20230307, end: 20230307
  14. EMEND [Suspect]
     Active Substance: APREPITANT
     Dosage: UNK
     Route: 048
     Dates: start: 20230429, end: 20230429
  15. EMEND [Suspect]
     Active Substance: APREPITANT
     Dosage: UNK
     Route: 048
     Dates: start: 20230523, end: 20230523
  16. FLUOROURACIL [Suspect]
     Active Substance: FLUOROURACIL
     Dosage: 2000 MG IV
     Route: 042
     Dates: start: 20221122, end: 20221122
  17. FLUOROURACIL [Suspect]
     Active Substance: FLUOROURACIL
     Dosage: 2000 MG IV
     Route: 042
     Dates: start: 20221123, end: 20221123
  18. FLUOROURACIL [Suspect]
     Active Substance: FLUOROURACIL
     Dosage: 2000 MG IV
     Route: 042
     Dates: start: 20221124, end: 20221124
  19. FLUOROURACIL [Suspect]
     Active Substance: FLUOROURACIL
     Dosage: 2000 MG IV, 24 HOURS INFUSION
     Route: 042
     Dates: start: 20221125, end: 20221125
  20. FLUOROURACIL [Suspect]
     Active Substance: FLUOROURACIL
     Dosage: 2000 MG IV
     Route: 042
     Dates: start: 20230103, end: 20230103
  21. FLUOROURACIL [Suspect]
     Active Substance: FLUOROURACIL
     Dosage: 2000 MG IV
     Route: 042
     Dates: start: 20230104, end: 20230104
  22. FLUOROURACIL [Suspect]
     Active Substance: FLUOROURACIL
     Dosage: 2000 MG IV
     Route: 042
     Dates: start: 20230105, end: 20230105
  23. FLUOROURACIL [Suspect]
     Active Substance: FLUOROURACIL
     Dosage: 2000 MG IV
     Route: 042
     Dates: start: 20230106, end: 20230106
  24. FLUOROURACIL [Suspect]
     Active Substance: FLUOROURACIL
     Dosage: 2000 MG IV
     Route: 042
     Dates: start: 20230210, end: 20230210
  25. FLUOROURACIL [Suspect]
     Active Substance: FLUOROURACIL
     Dosage: 2000 MG IV
     Route: 042
     Dates: start: 20230211, end: 20230211
  26. FLUOROURACIL [Suspect]
     Active Substance: FLUOROURACIL
     Dosage: 2000 MG IV
     Route: 042
     Dates: start: 20230212, end: 20230212
  27. FLUOROURACIL [Suspect]
     Active Substance: FLUOROURACIL
     Dosage: 2000 MG IV
     Route: 042
     Dates: start: 20230213, end: 20230213
  28. FLUOROURACIL [Suspect]
     Active Substance: FLUOROURACIL
     Dosage: 2000 MG IV
     Route: 042
     Dates: start: 20230307, end: 20230307
  29. FLUOROURACIL [Suspect]
     Active Substance: FLUOROURACIL
     Dosage: 2000 MG IV
     Route: 042
     Dates: start: 20230308, end: 20230308
  30. FLUOROURACIL [Suspect]
     Active Substance: FLUOROURACIL
     Dosage: 2000 MG IV
     Route: 042
     Dates: start: 20230309, end: 20230309
  31. FLUOROURACIL [Suspect]
     Active Substance: FLUOROURACIL
     Dosage: 2000 MG IV
     Route: 042
     Dates: start: 20230310, end: 20230310
  32. CISPLATIN [Suspect]
     Active Substance: CISPLATIN
     Dosage: 200 MG
     Route: 042
     Dates: start: 20221122, end: 20221122
  33. CISPLATIN [Suspect]
     Active Substance: CISPLATIN
     Dosage: 200 MG
     Route: 042
     Dates: start: 20230103, end: 20230103
  34. CISPLATIN [Suspect]
     Active Substance: CISPLATIN
     Dosage: 200 MG
     Route: 042
     Dates: start: 20230210, end: 20230210
  35. CISPLATIN [Suspect]
     Active Substance: CISPLATIN
     Dosage: 200 MG
     Route: 042
     Dates: start: 20230307, end: 20230307
  36. CISPLATIN [Suspect]
     Active Substance: CISPLATIN
     Dosage: 70 MG
     Route: 042
     Dates: start: 20230423, end: 20230423
  37. CISPLATIN [Suspect]
     Active Substance: CISPLATIN
     Dosage: 70 MG
     Route: 042
     Dates: start: 20230429, end: 20230429
  38. CISPLATIN [Suspect]
     Active Substance: CISPLATIN
     Dosage: 70 MG
     Route: 042
     Dates: start: 20230430, end: 20230430
  39. CISPLATIN [Suspect]
     Active Substance: CISPLATIN
     Dosage: 60 MG
     Route: 042
     Dates: start: 20230501, end: 20230501
  40. CISPLATIN [Suspect]
     Active Substance: CISPLATIN
     Dosage: 70 MG IV
     Route: 042
     Dates: start: 20230523, end: 20230523
  41. CISPLATIN [Suspect]
     Active Substance: CISPLATIN
     Dosage: 70 MG
     Route: 042
     Dates: start: 20230524, end: 20230524
  42. CISPLATIN [Suspect]
     Active Substance: CISPLATIN
     Dosage: 60 MG
     Route: 042
     Dates: start: 20230525, end: 20230525
  43. DEXAMETHASONE [Suspect]
     Active Substance: DEXAMETHASONE
     Dosage: UNK
     Route: 065
     Dates: start: 20221122, end: 20221122
  44. DEXAMETHASONE [Suspect]
     Active Substance: DEXAMETHASONE
     Dosage: UNK
     Route: 065
     Dates: start: 20230103, end: 20230103
  45. DEXAMETHASONE [Suspect]
     Active Substance: DEXAMETHASONE
     Dosage: UNK
     Route: 065
     Dates: start: 20230210, end: 20230210
  46. DEXAMETHASONE [Suspect]
     Active Substance: DEXAMETHASONE
     Dosage: UNK
     Route: 065
     Dates: start: 20230307, end: 20230307
  47. DEXAMETHASONE [Suspect]
     Active Substance: DEXAMETHASONE
     Dosage: UNK
     Route: 065
     Dates: start: 20230429, end: 20230429
  48. DEXAMETHASONE [Suspect]
     Active Substance: DEXAMETHASONE
     Dosage: UNK
     Route: 065
     Dates: start: 20230523, end: 20230523
  49. ZOFRAN [Suspect]
     Active Substance: ONDANSETRON HYDROCHLORIDE
     Dosage: UNK
     Route: 065
     Dates: start: 20221122, end: 20221122
  50. ZOFRAN [Suspect]
     Active Substance: ONDANSETRON HYDROCHLORIDE
     Dosage: UNK
     Route: 065
     Dates: start: 20230103, end: 20230103
  51. ZOFRAN [Suspect]
     Active Substance: ONDANSETRON HYDROCHLORIDE
     Dosage: UNK
     Route: 065
     Dates: start: 20230210, end: 20230210
  52. ZOFRAN [Suspect]
     Active Substance: ONDANSETRON HYDROCHLORIDE
     Dosage: UNK
     Route: 065
     Dates: start: 20230307, end: 20230307
  53. ZOFRAN [Suspect]
     Active Substance: ONDANSETRON HYDROCHLORIDE
     Dosage: UNK
     Route: 065
     Dates: start: 20230429, end: 20230429
  54. ZOFRAN [Suspect]
     Active Substance: ONDANSETRON HYDROCHLORIDE
     Dosage: UNK
     Route: 065
     Dates: start: 20230523, end: 20230523
  55. MANNITOL [Suspect]
     Active Substance: MANNITOL
     Dosage: UNK
     Route: 065
     Dates: start: 20221122, end: 20221122
  56. MANNITOL [Suspect]
     Active Substance: MANNITOL
     Dosage: UNK
     Route: 065
     Dates: start: 20230103, end: 20230103
  57. MANNITOL [Suspect]
     Active Substance: MANNITOL
     Dosage: UNK
     Route: 065
     Dates: start: 20230210, end: 20230210
  58. MANNITOL [Suspect]
     Active Substance: MANNITOL
     Dosage: UNK
     Route: 065
     Dates: start: 20230307, end: 20230307
  59. MANNITOL [Suspect]
     Active Substance: MANNITOL
     Dosage: UNK
     Route: 065
     Dates: start: 20230429, end: 20230429
  60. MANNITOL [Suspect]
     Active Substance: MANNITOL
     Dosage: UNK
     Route: 065
     Dates: start: 20230523, end: 20230523
  61. METOCLOPRAMIDE [Suspect]
     Active Substance: METOCLOPRAMIDE
     Dosage: UNK
     Route: 065
     Dates: start: 20221122, end: 20221122
  62. METOCLOPRAMIDE [Suspect]
     Active Substance: METOCLOPRAMIDE
     Dosage: UNK
     Route: 065
     Dates: start: 20230103, end: 20230103
  63. METOCLOPRAMIDE [Suspect]
     Active Substance: METOCLOPRAMIDE
     Dosage: UNK
     Route: 065
     Dates: start: 20230210, end: 20230210
  64. METOCLOPRAMIDE [Suspect]
     Active Substance: METOCLOPRAMIDE
     Dosage: UNK
     Route: 065
     Dates: start: 20230307, end: 20230307
  65. METOCLOPRAMIDE [Suspect]
     Active Substance: METOCLOPRAMIDE
     Dosage: UNK
     Route: 065
     Dates: start: 20230429, end: 20230429
  66. METOCLOPRAMIDE [Suspect]
     Active Substance: METOCLOPRAMIDE
     Dosage: UNK
     Route: 065
     Dates: start: 20230523, end: 20230523
  67. POTASSIUM CHLORIDE [Suspect]
     Active Substance: POTASSIUM CHLORIDE
     Dosage: UNK
     Route: 065
     Dates: start: 20221122, end: 20221122
  68. POTASSIUM CHLORIDE [Suspect]
     Active Substance: POTASSIUM CHLORIDE
     Dosage: UNK
     Route: 065
     Dates: start: 20230103, end: 20230103
  69. POTASSIUM CHLORIDE [Suspect]
     Active Substance: POTASSIUM CHLORIDE
     Dosage: UNK
     Route: 065
     Dates: start: 20230210, end: 20230210
  70. POTASSIUM CHLORIDE [Suspect]
     Active Substance: POTASSIUM CHLORIDE
     Dosage: UNK
     Route: 065
     Dates: start: 20230307, end: 20230307
  71. POTASSIUM CHLORIDE [Suspect]
     Active Substance: POTASSIUM CHLORIDE
     Dosage: UNK
     Route: 065
     Dates: start: 20230429, end: 20230429
  72. POTASSIUM CHLORIDE [Suspect]
     Active Substance: POTASSIUM CHLORIDE
     Dosage: UNK
     Route: 065
     Dates: start: 20230523, end: 20230523
  73. FUROSEMIDE [Suspect]
     Active Substance: FUROSEMIDE
     Dosage: UNK
     Route: 065
     Dates: start: 20221122, end: 20221122
  74. FUROSEMIDE [Suspect]
     Active Substance: FUROSEMIDE
     Dosage: UNK
     Route: 065
     Dates: start: 20230103, end: 20230103
  75. FUROSEMIDE [Suspect]
     Active Substance: FUROSEMIDE
     Dosage: UNK
     Route: 065
     Dates: start: 20230210, end: 20230210
  76. FUROSEMIDE [Suspect]
     Active Substance: FUROSEMIDE
     Dosage: UNK
     Route: 065
     Dates: start: 20230307, end: 20230307
  77. FUROSEMIDE [Suspect]
     Active Substance: FUROSEMIDE
     Dosage: UNK
     Route: 065
     Dates: start: 20230429, end: 20230429
  78. FUROSEMIDE [Suspect]
     Active Substance: FUROSEMIDE
     Dosage: UNK
     Route: 065
     Dates: start: 20230523, end: 20230523
  79. FUROSEMIDE [Suspect]
     Active Substance: FUROSEMIDE
     Dosage: UNK
     Route: 065
     Dates: start: 20220307, end: 20220307
  80. MAGNESIUM SULFATE [Suspect]
     Active Substance: MAGNESIUM SULFATE\MAGNESIUM SULFATE HEPTAHYDRATE
     Dosage: UNK
     Route: 042
     Dates: start: 20221122, end: 20221122
  81. MAGNESIUM SULFATE [Suspect]
     Active Substance: MAGNESIUM SULFATE\MAGNESIUM SULFATE HEPTAHYDRATE
     Dosage: UNK
     Route: 042
     Dates: start: 20230103, end: 20230103
  82. MAGNESIUM SULFATE [Suspect]
     Active Substance: MAGNESIUM SULFATE\MAGNESIUM SULFATE HEPTAHYDRATE
     Dosage: UNK
     Route: 042
     Dates: start: 20230210, end: 20230210
  83. MAGNESIUM SULFATE [Suspect]
     Active Substance: MAGNESIUM SULFATE\MAGNESIUM SULFATE HEPTAHYDRATE
     Dosage: UNK
     Route: 042
     Dates: start: 20230307, end: 20230307
  84. MAGNESIUM SULFATE [Suspect]
     Active Substance: MAGNESIUM SULFATE\MAGNESIUM SULFATE HEPTAHYDRATE
     Dosage: UNK
     Route: 042
     Dates: start: 20230429, end: 20230429
  85. MAGNESIUM SULFATE [Suspect]
     Active Substance: MAGNESIUM SULFATE\MAGNESIUM SULFATE HEPTAHYDRATE
     Dosage: UNK
     Route: 042
     Dates: start: 20230523, end: 20230523
  86. DAPAGLIFLOZIN [Concomitant]
     Active Substance: DAPAGLIFLOZIN
     Indication: Product used for unknown indication
     Dosage: 10 MG 1 TABLET IN THE MORNING
     Route: 065
  87. DAPAGLIFLOZIN [Concomitant]
     Active Substance: DAPAGLIFLOZIN
     Dosage: 10 MG, QD IN THE MORNING

REACTIONS (36)
  - Cardiac failure [Unknown]
  - Aortic stenosis [Unknown]
  - Anaemia [Recovering/Resolving]
  - Lumbar vertebral fracture [Unknown]
  - Atrial fibrillation [Unknown]
  - Blood folate decreased [Unknown]
  - C-reactive protein decreased [Unknown]
  - Blood urea decreased [Unknown]
  - Left atrial dilatation [Unknown]
  - Aortic valve calcification [Unknown]
  - Procalcitonin decreased [Unknown]
  - Supraventricular extrasystoles [Unknown]
  - Lung infiltration [Unknown]
  - Pulmonary septal thickening [Unknown]
  - Pleural effusion [Unknown]
  - Eosinophil percentage decreased [Unknown]
  - Eosinophil count decreased [Unknown]
  - Blood creatine decreased [Unknown]
  - Blood albumin decreased [Unknown]
  - C-reactive protein increased [Unknown]
  - Red cell distribution width increased [Unknown]
  - Blood chloride decreased [Unknown]
  - Protein total decreased [Unknown]
  - White blood cell count increased [Unknown]
  - Blood urea increased [Unknown]
  - Blood magnesium decreased [Unknown]
  - Oedema peripheral [Unknown]
  - Platelet count decreased [Unknown]
  - Asthenia [Unknown]
  - Inappropriate schedule of product administration [Unknown]
  - Inappropriate schedule of product administration [Unknown]
  - Inappropriate schedule of product administration [Unknown]
  - Inappropriate schedule of product administration [Unknown]
  - Inappropriate schedule of product administration [Unknown]
  - Inappropriate schedule of product administration [Unknown]
  - Inappropriate schedule of product administration [Unknown]

NARRATIVE: CASE EVENT DATE: 20220101
